FAERS Safety Report 4975038-6 (Version None)
Quarter: 2006Q2

REPORT INFORMATION
  Report Type: 
  Country: None (occurrence: None)
  Receive Date: 20060414
  Receipt Date: 20060414
  Transmission Date: 20061013
  Serious: Yes (Hospitalization)
  Sender: FDA-Public Use
  Company Number: None

PATIENT
  Age: 86 Year
  Sex: Male

DRUGS (2)
  1. SIMVASTATIN [Suspect]
     Indication: DYSLIPIDAEMIA
     Dosage: PO
     Route: 048
  2. BICALUTAMIDE         ASTRA ZENECA [Suspect]
     Indication: PROSTATE CANCER
     Dosage: PO
     Route: 048

REACTIONS (2)
  - BLOOD ALBUMIN DECREASED [None]
  - HEPATITIS ACUTE [None]
